FAERS Safety Report 25256692 (Version 2)
Quarter: 2025Q2

REPORT INFORMATION
  Report Type: Spontaneous
  Country: US (occurrence: US)
  Receive Date: 20250430
  Receipt Date: 20250528
  Transmission Date: 20250716
  Serious: No
  Sender: ABBVIE
  Company Number: US-ABBVIE-6241885

PATIENT
  Age: 77 Year
  Sex: Female

DRUGS (2)
  1. RESTASIS [Suspect]
     Active Substance: CYCLOSPORINE
     Indication: Dry eye
     Route: 047
     Dates: start: 202503
  2. REFRESH CLASSIC [Concomitant]
     Active Substance: POLYVINYL ALCOHOL\POVIDONE
     Indication: Dry eye

REACTIONS (4)
  - Visual impairment [Unknown]
  - Eye pruritus [Unknown]
  - Drug ineffective [Not Recovered/Not Resolved]
  - Lacrimation increased [Unknown]

NARRATIVE: CASE EVENT DATE: 20250101
